FAERS Safety Report 10065404 (Version 1)
Quarter: 2014Q2

REPORT INFORMATION
  Report Type: Spontaneous
  Country: US (occurrence: US)
  Receive Date: 20140408
  Receipt Date: 20140408
  Transmission Date: 20141212
  Serious: Yes (Other)
  Sender: FDA-Public Use
  Company Number: US-GLAXOSMITHKLINE-A1068354A

PATIENT
  Age: 61 Year
  Sex: Female

DRUGS (1)
  1. VOTRIENT [Suspect]
     Indication: OVARIAN CANCER
     Route: 048

REACTIONS (4)
  - Lung operation [Unknown]
  - Lung disorder [Unknown]
  - Diarrhoea [Recovering/Resolving]
  - Cough [Unknown]
